FAERS Safety Report 20746330 (Version 1)
Quarter: 2022Q2

REPORT INFORMATION
  Report Type: Spontaneous
  Country: US (occurrence: US)
  Receive Date: 20220425
  Receipt Date: 20220425
  Transmission Date: 20220721
  Serious: Yes (Hospitalization)
  Sender: FDA-Public Use
  Company Number: US-PFIZER INC-202101742243

PATIENT
  Age: 66 Year
  Sex: Female
  Weight: 33.57 kg

DRUGS (1)
  1. PREMARIN [Suspect]
     Active Substance: ESTROGENS, CONJUGATED
     Indication: Hysterectomy
     Dosage: 1.25 MG, 1X/DAY
     Route: 048
     Dates: start: 1997

REACTIONS (2)
  - Illness [Unknown]
  - Amnesia [Unknown]

NARRATIVE: CASE EVENT DATE: 20220201
